FAERS Safety Report 16249228 (Version 1)
Quarter: 2019Q2

REPORT INFORMATION
  Report Type: Spontaneous
  Country: GB (occurrence: GB)
  Receive Date: 20190429
  Receipt Date: 20190429
  Transmission Date: 20190711
  Serious: Yes (Hospitalization)
  Sender: FDA-Public Use
  Company Number: GB-ACCORD-124186

PATIENT
  Age: 74 Year
  Sex: Male

DRUGS (13)
  1. SOLIFENACIN/SOLIFENACIN SUCCINATE [Concomitant]
  2. NYSTATIN. [Concomitant]
     Active Substance: NYSTATIN
  3. NEBIVOLOL. [Concomitant]
     Active Substance: NEBIVOLOL
  4. AMOXICILLIN. [Concomitant]
     Active Substance: AMOXICILLIN
  5. TRIMETHOPRIM/TRIMETHOPRIM LACTATE/TRIMETHOPRIM SULFATE [Suspect]
     Active Substance: TRIMETHOPRIM
     Indication: URINARY TRACT INFECTION
     Route: 048
     Dates: start: 20190215, end: 20190222
  6. ATORVASTATIN [Concomitant]
     Active Substance: ATORVASTATIN
  7. GLYCERYL TRINITRATE [Concomitant]
     Active Substance: NITROGLYCERIN
  8. FUROSEMIDE. [Suspect]
     Active Substance: FUROSEMIDE
     Indication: PRODUCT USED FOR UNKNOWN INDICATION
     Route: 048
  9. AVAMYS [Concomitant]
     Active Substance: FLUTICASONE FUROATE
     Route: 045
  10. EPLERENONE. [Suspect]
     Active Substance: EPLERENONE
     Indication: PRODUCT USED FOR UNKNOWN INDICATION
     Route: 048
  11. ACETYLSALICYLIC ACID [Concomitant]
     Active Substance: ASPIRIN
  12. CANDESARTAN. [Suspect]
     Active Substance: CANDESARTAN
     Indication: PRODUCT USED FOR UNKNOWN INDICATION
     Dosage: INCREASED FROM 8MG
     Route: 048
     Dates: start: 20190214
  13. COCODAMOL [Concomitant]
     Active Substance: ACETAMINOPHEN\CODEINE PHOSPHATE

REACTIONS (1)
  - Acute kidney injury [Recovering/Resolving]

NARRATIVE: CASE EVENT DATE: 20190226
